FAERS Safety Report 21747912 (Version 1)
Quarter: 2022Q4

REPORT INFORMATION
  Report Type: Spontaneous
  Country: RU (occurrence: RU)
  Receive Date: 20221219
  Receipt Date: 20221219
  Transmission Date: 20230113
  Serious: Yes (Hospitalization)
  Sender: FDA-Public Use
  Company Number: RU-SA-2022SA508374

PATIENT
  Age: 13 Year
  Sex: Female

DRUGS (4)
  1. OXALIPLATIN [Suspect]
     Active Substance: OXALIPLATIN
     Indication: Hepatic sarcoma
     Dosage: CHEMOEMBOLIZATION USED MICROSPHERES 200?400?M IN DIAMETER LOADED WITH OXALIPLATIN (50 MG) INFUSED IN
     Route: 041
  2. OXALIPLATIN [Suspect]
     Active Substance: OXALIPLATIN
     Indication: Neurofibromatosis
     Dosage: CHEMOPERFUSION INVOLVED OXALIPLATIN AT A DOSE OF 25 MG FOR 1 HOUR THROUGH CATHETER INSERTED IN THE P
  3. DOXORUBICIN [Suspect]
     Active Substance: DOXORUBICIN
     Indication: Hepatic sarcoma
     Dosage: CHEMOPERFUSION INVOLVED DOXORUBICIN AT A DOSE OF 25 MG FOR 2 HOURS  THROUGH CATHETER INSERTED IN THE
  4. DOXORUBICIN [Suspect]
     Active Substance: DOXORUBICIN
     Indication: Neurofibromatosis

REACTIONS (2)
  - Post embolisation syndrome [Recovered/Resolved]
  - Abdominal pain [Recovered/Resolved]
